FAERS Safety Report 23534742 (Version 1)
Quarter: 2024Q1

REPORT INFORMATION
  Report Type: Spontaneous
  Country: None (occurrence: US)
  Receive Date: 20240217
  Receipt Date: 20240217
  Transmission Date: 20240410
  Serious: No
  Sender: FDA-Public Use
  Company Number: US-HORIZON THERAPEUTICS-HZN-2023-010601

PATIENT

DRUGS (2)
  1. TEPEZZA [Suspect]
     Active Substance: TEPROTUMUMAB-TRBW
     Indication: Product used for unknown indication
     Dosage: FIRST DOSE
     Route: 042
  2. PREDNISONE [Concomitant]
     Active Substance: PREDNISONE
     Dosage: E 50-60 MG OF PREDNISONE FOR A FEW WEEKS
     Route: 042

REACTIONS (4)
  - Pain [Unknown]
  - Swelling [Unknown]
  - Diplopia [Unknown]
  - Symptom recurrence [Unknown]
